FAERS Safety Report 5962797-9 (Version None)
Quarter: 2008Q4

REPORT INFORMATION
  Report Type: 
  Country: None (occurrence: None)
  Receive Date: 20081124
  Receipt Date: 20070209
  Transmission Date: 20090506
  Serious: Yes (Death, Hospitalization)
  Sender: FDA-Public Use
  Company Number: US-BRISTOL-MYERS SQUIBB COMPANY-14412829

PATIENT
  Age: 61 Year
  Sex: Male
  Weight: 70 kg

DRUGS (2)
  1. CETUXIMAB [Suspect]
     Indication: NON-SMALL CELL LUNG CANCER
     Dosage: CHIMERIC ANTI-EGFR MAB.THERAPY START DATE  16DEC05
     Route: 042
     Dates: start: 20060811, end: 20060811
  2. TAXOTERE [Suspect]
     Indication: NON-SMALL CELL LUNG CANCER
     Dosage: THERAPY START DATE  16DEC05
     Route: 042
     Dates: start: 20060331, end: 20060331

REACTIONS (3)
  - DEATH [None]
  - HAEMOPTYSIS [None]
  - MUCOSAL INFLAMMATION [None]
